FAERS Safety Report 17237183 (Version 1)
Quarter: 2020Q1

REPORT INFORMATION
  Report Type: Spontaneous
  Country: TR (occurrence: TR)
  Receive Date: 20200106
  Receipt Date: 20200106
  Transmission Date: 20200409
  Serious: Yes (Hospitalization, Other)
  Sender: FDA-Public Use
  Company Number: TR-TEVA-2019-TR-1162892

PATIENT
  Sex: Female

DRUGS (6)
  1. PREDNISOLONE. [Suspect]
     Active Substance: PREDNISOLONE
     Indication: IMMUNOSUPPRESSANT DRUG THERAPY
     Dosage: 4 MILLIGRAM DAILY;
     Route: 065
     Dates: start: 199705, end: 200107
  2. CYCLOSPORIN-A [Suspect]
     Active Substance: CYCLOSPORINE
     Indication: IMMUNOSUPPRESSANT DRUG THERAPY
     Route: 065
     Dates: start: 199705
  3. AZATHIOPRINE. [Suspect]
     Active Substance: AZATHIOPRINE
     Indication: IMMUNOSUPPRESSANT DRUG THERAPY
     Dosage: 100 MILLIGRAM DAILY;
     Route: 065
     Dates: start: 199705
  4. AZATHIOPRINE. [Suspect]
     Active Substance: AZATHIOPRINE
     Route: 065
     Dates: start: 200809
  5. MYCOPHENOLATE MOFETIL. [Suspect]
     Active Substance: MYCOPHENOLATE MOFETIL
     Indication: IMMUNOSUPPRESSANT DRUG THERAPY
     Dosage: 1.5 GRAM DAILY;
     Route: 065
  6. TACROLIMUS. [Suspect]
     Active Substance: TACROLIMUS
     Indication: IMMUNOSUPPRESSANT DRUG THERAPY
     Route: 065
     Dates: start: 199705

REACTIONS (4)
  - Hepatitis C [Unknown]
  - Epstein-Barr virus infection [Unknown]
  - Cellulitis [Unknown]
  - Burkitt^s lymphoma [Unknown]

NARRATIVE: CASE EVENT DATE: 200912
